FAERS Safety Report 7319934-3 (Version None)
Quarter: 2011Q1

REPORT INFORMATION
  Report Type: 
  Country: None (occurrence: None)
  Receive Date: 20110228
  Receipt Date: 20101216
  Transmission Date: 20110831
  Serious: No
  Sender: FDA-Public Use
  Company Number: A0900172A

PATIENT
  Age: 64 Year
  Sex: Female

DRUGS (5)
  1. SEROQUEL [Suspect]
     Indication: BIPOLAR DISORDER
     Dates: start: 20100728, end: 20101101
  2. LAMOTRIGINE [Suspect]
     Indication: BIPOLAR DISORDER
     Dosage: 150MG PER DAY
     Route: 048
     Dates: start: 20100728
  3. UNKNOWN MEDICATION [Concomitant]
  4. SEROQUEL [Concomitant]
  5. LORAZEPAM [Concomitant]

REACTIONS (1)
  - MUSCLE TWITCHING [None]
